FAERS Safety Report 19878043 (Version 1)
Quarter: 2021Q3

REPORT INFORMATION
  Report Type: Spontaneous
  Country: HU (occurrence: HU)
  Receive Date: 20210923
  Receipt Date: 20210923
  Transmission Date: 20211014
  Serious: Yes (Hospitalization, Other)
  Sender: FDA-Public Use
  Company Number: NVSC2021HU211428

PATIENT
  Sex: Female

DRUGS (21)
  1. VALSARTAN. [Suspect]
     Active Substance: VALSARTAN
     Indication: HYPERTENSION
     Dosage: 160 MG, Q8H
     Route: 065
  2. NEBIBETA [Concomitant]
     Active Substance: NEBIVOLOL HYDROCHLORIDE
     Indication: PRODUCT USED FOR UNKNOWN INDICATION
     Dosage: 5 MG,QD
     Route: 065
  3. ASA PROTECT PHARMAVIT [Concomitant]
     Indication: THROMBOSIS PROPHYLAXIS
     Dosage: 100 MG,QD (IN THE MORNING)
     Route: 065
  4. COVERCARD PLUS [Suspect]
     Active Substance: AMLODIPINE BESYLATE\INDAPAMIDE\PERINDOPRIL ARGININE
     Indication: HYPERTENSION
     Dosage: UNK
     Route: 065
  5. TALLITON [Suspect]
     Active Substance: CARVEDILOL
     Indication: HYPERTENSION
     Dosage: UNK (FORM STRENGTH: 12.5 MG)
     Route: 065
  6. CLOPIDOGREL [Concomitant]
     Active Substance: CLOPIDOGREL BISULFATE
     Indication: THROMBOSIS PROPHYLAXIS
     Dosage: UNK
     Route: 065
  7. TENSIOMIN [Suspect]
     Active Substance: CAPTOPRIL
     Indication: HYPERTENSION
     Dosage: 12.5 MG, Q6H
     Route: 065
     Dates: start: 2020
  8. CARDURAXL [Concomitant]
     Active Substance: DOXAZOSIN MESYLATE
     Indication: PRODUCT USED FOR UNKNOWN INDICATION
     Dosage: UNK
     Route: 065
  9. OXYCORT [Concomitant]
     Indication: PRODUCT USED FOR UNKNOWN INDICATION
     Dosage: SPRAY (NOT INHALATION)
     Route: 065
  10. TENAXUM [Suspect]
     Active Substance: RILMENIDINE
     Indication: HYPERTENSION
     Dosage: 1 MG, Q8H
     Route: 065
  11. IVABRADINE ANPHARM [Concomitant]
     Indication: ARRHYTHMIA
     Dosage: 7.5 MG (7.5 MG (2X1/2 TABL DAILY)
     Route: 065
  12. AMLODIPINE [Concomitant]
     Active Substance: AMLODIPINE BESYLATE
     Indication: PRODUCT USED FOR UNKNOWN INDICATION
     Dosage: UNK,QD (IN THE MORNING, 5/160 MG)
     Route: 065
  13. TENSIOMIN [Suspect]
     Active Substance: CAPTOPRIL
     Dosage: OCCASIONALLY
     Route: 065
  14. CORDAFLEX [Suspect]
     Active Substance: NIFEDIPINE
     Indication: HYPERTENSION
     Dosage: 5 MG (1 PUFF IF BP IS BETWEEN 160?170, 2 PUFFS IF BP IS BETWEEN 170?200, 3 PUFFS IF BP IS ABOVE 200)
     Route: 065
  15. MAGNESIUM WITH VITAMIN B6 [Concomitant]
     Indication: SEDATIVE THERAPY
     Dosage: UNK
     Route: 065
  16. DIOVAN [Concomitant]
     Active Substance: VALSARTAN
     Indication: PRODUCT USED FOR UNKNOWN INDICATION
     Dosage: 160 MG, Q12H
     Route: 065
  17. INSPRA [Suspect]
     Active Substance: EPLERENONE
     Indication: HYPERTENSION
     Dosage: 50 MG,QD (IN THE MORNING)
     Route: 065
     Dates: start: 202103
  18. DOPEGYT [Concomitant]
     Active Substance: METHYLDOPA
     Indication: HYPERTENSION
     Dosage: 250 MG
     Route: 065
  19. PANANGIN FORTE [Concomitant]
     Indication: PRODUCT USED FOR UNKNOWN INDICATION
     Dosage: UNK UNK, Q8H
     Route: 065
  20. ZYLLT [Concomitant]
     Active Substance: CLOPIDOGREL BISULFATE
     Indication: PRODUCT USED FOR UNKNOWN INDICATION
     Dosage: 75 MG,QD (IN THE MORNING)
     Route: 065
  21. XANAX XR [Concomitant]
     Active Substance: ALPRAZOLAM
     Indication: PRODUCT USED FOR UNKNOWN INDICATION
     Dosage: 1 MG,12
     Route: 065

REACTIONS (34)
  - Dyspnoea [Unknown]
  - Headache [Unknown]
  - Oedema peripheral [Unknown]
  - Urinary tract infection [Unknown]
  - Depression [Not Recovered/Not Resolved]
  - Genital blister [Unknown]
  - Hypercoagulation [Unknown]
  - Hypoaesthesia [Unknown]
  - Leukopenia [Unknown]
  - Hypertension [Unknown]
  - Haematuria [Unknown]
  - Hypercholesterolaemia [Unknown]
  - Vision blurred [Unknown]
  - Nocturia [Unknown]
  - Pulmonary oedema [Unknown]
  - Arthralgia [Unknown]
  - Abdominal pain [Unknown]
  - Treatment noncompliance [Unknown]
  - Dry mouth [Unknown]
  - Gastrooesophageal sphincter insufficiency [Unknown]
  - Product dose omission issue [Unknown]
  - Cough [Unknown]
  - Flatulence [Unknown]
  - Blood glucose increased [Unknown]
  - Vertigo [Unknown]
  - Visual impairment [Unknown]
  - Palpitations [Unknown]
  - Skin wrinkling [Unknown]
  - Product prescribing error [Unknown]
  - Insomnia [Unknown]
  - Constipation [Unknown]
  - Dehydration [Unknown]
  - Alopecia [Unknown]
  - Weight increased [Unknown]
